FAERS Safety Report 7386928-1 (Version None)
Quarter: 2011Q1

REPORT INFORMATION
  Report Type: 
  Country: None (occurrence: None)
  Receive Date: 20110331
  Receipt Date: 20110325
  Transmission Date: 20110831
  Serious: Yes (Death, Life-Threatening)
  Sender: FDA-Public Use
  Company Number: BE-CELGENEUS-013-C5013-10041197

PATIENT
  Age: 80 Year
  Sex: Female
  Weight: 47.3 kg

DRUGS (6)
  1. MELPHALAN [Suspect]
     Indication: MULTIPLE MYELOMA
     Route: 065
     Dates: start: 20070822, end: 20080413
  2. LENALIDOMIDE [Suspect]
     Indication: MULTIPLE MYELOMA
     Dosage: 2.5 MILLIGRAM
     Route: 048
     Dates: start: 20070822, end: 20100330
  3. NEUPOGEN [Concomitant]
     Indication: NEUTROPENIA
     Dosage: 300 MILLIGRAM
     Route: 058
     Dates: start: 20100414
  4. WHOLE BLOOD [Concomitant]
     Route: 051
  5. PLATELETS [Concomitant]
     Route: 051
  6. PREDNISONE [Suspect]
     Indication: MULTIPLE MYELOMA
     Route: 065
     Dates: start: 20070822

REACTIONS (1)
  - ACUTE MYELOID LEUKAEMIA [None]
